FAERS Safety Report 16668119 (Version 3)
Quarter: 2019Q3

REPORT INFORMATION
  Report Type: Spontaneous
  Country: US (occurrence: US)
  Receive Date: 20190805
  Receipt Date: 20190919
  Transmission Date: 20191004
  Serious: No
  Sender: FDA-Public Use
  Company Number: US-PFIZER INC-2019321967

PATIENT
  Age: 86 Year
  Sex: Male

DRUGS (3)
  1. TIMOLOL MALEATE. [Concomitant]
     Active Substance: TIMOLOL MALEATE
     Dosage: UNK
  2. LATANOPROST. [Suspect]
     Active Substance: LATANOPROST
     Dosage: 2 GTT, 1X/DAY (125 MCG / 2.5 ML) (1 DROP EACH EYE AT NIGHT)
     Route: 047
  3. LATANOPROST. [Suspect]
     Active Substance: LATANOPROST
     Dosage: UNK

REACTIONS (3)
  - Product packaging quantity issue [Unknown]
  - Body height decreased [Unknown]
  - Poor quality product administered [Unknown]
